FAERS Safety Report 11060413 (Version 1)
Quarter: 2015Q2

REPORT INFORMATION
  Report Type: Spontaneous
  Country: PE (occurrence: PE)
  Receive Date: 20150423
  Receipt Date: 20150423
  Transmission Date: 20150821
  Serious: Yes (Other)
  Sender: FDA-Public Use
  Company Number: PE-BAYER-2015-135855

PATIENT
  Sex: Male

DRUGS (1)
  1. APRONAX [Suspect]
     Active Substance: NAPROXEN SODIUM

REACTIONS (2)
  - Blood urine present [None]
  - Nephrolithiasis [None]
